FAERS Safety Report 8237558-0 (Version None)
Quarter: 2012Q1

REPORT INFORMATION
  Report Type: 
  Country: None (occurrence: None)
  Receive Date: 20120327
  Receipt Date: 20120319
  Transmission Date: 20120608
  Serious: Yes (Other)
  Sender: FDA-Public Use
  Company Number: US-BAYER-2012-027231

PATIENT
  Age: 32 Year
  Sex: Female

DRUGS (1)
  1. MIRENA [Suspect]
     Dosage: 20 MCG/24HR, UNK
     Dates: start: 20070101, end: 20110101

REACTIONS (7)
  - MUSCULOSKELETAL PAIN [None]
  - FATIGUE [None]
  - BACK PAIN [None]
  - PAIN [None]
  - EXOSTOSIS [None]
  - RHEUMATOID ARTHRITIS [None]
  - DYSPAREUNIA [None]
